FAERS Safety Report 8105496-X (Version None)
Quarter: 2012Q1

REPORT INFORMATION
  Report Type: 
  Country: None (occurrence: None)
  Receive Date: 20120201
  Receipt Date: 20120120
  Transmission Date: 20120608
  Serious: Yes (Hospitalization)
  Sender: FDA-Public Use
  Company Number: JP-PFIZER INC-2012009793

PATIENT
  Age: 66 Year
  Sex: Female
  Weight: 49.1 kg

DRUGS (8)
  1. LANSOPRAZOLE [Concomitant]
     Indication: GASTRITIS PROPHYLAXIS
     Dosage: 15 MG, 1X/DAY
     Route: 048
  2. PL GRAN. [Concomitant]
     Indication: NASOPHARYNGITIS
     Dosage: 1 G, 3X/DAY
     Route: 048
  3. CEFAZOLIN SODIUM [Concomitant]
     Indication: DIARRHOEA
     Dosage: 1 G, 3X/DAY
     Route: 048
  4. MUCOSTA [Concomitant]
     Indication: GASTRITIS PROPHYLAXIS
     Dosage: 100 MG, 3X/DAY
     Route: 048
  5. CRIZOTINIB [Suspect]
     Indication: NON-SMALL CELL LUNG CANCER
     Dosage: 250 MG, 2X/DAY
     Route: 048
     Dates: start: 20111221, end: 20120112
  6. PRIMPERAN TAB [Concomitant]
     Indication: NAUSEA
     Dosage: 5 MG, 3X/DAY
     Route: 048
     Dates: start: 20111221
  7. MUCODYNE [Concomitant]
     Indication: PRODUCTIVE COUGH
     Dosage: 500 MG, 3X/DAY
     Route: 048
  8. ISODINE [Concomitant]
     Indication: INFECTION PROPHYLAXIS
     Dosage: UNK
     Route: 049

REACTIONS (1)
  - CELLULITIS [None]
